FAERS Safety Report 7097027-0 (Version None)
Quarter: 2010Q4

REPORT INFORMATION
  Report Type: 
  Country: None (occurrence: None)
  Receive Date: 20101111
  Receipt Date: 20101101
  Transmission Date: 20110411
  Serious: Yes (Other)
  Sender: FDA-Public Use
  Company Number: US-JNJFOC-20101101875

PATIENT
  Age: 20 Year
  Sex: Female

DRUGS (2)
  1. ORTHO TRI-CYCLEN LO [Suspect]
     Indication: OVARIAN DISORDER
     Route: 048
  2. ANTIHISTAMINES [Suspect]
     Indication: HYPERSENSITIVITY
     Route: 065

REACTIONS (6)
  - EYE SWELLING [None]
  - HYPERSENSITIVITY [None]
  - HYPOTENSION [None]
  - OFF LABEL USE [None]
  - OVERDOSE [None]
  - SYNCOPE [None]
